FAERS Safety Report 12289819 (Version 1)
Quarter: 2016Q2

REPORT INFORMATION
  Report Type: Spontaneous
  Country: US (occurrence: US)
  Receive Date: 20160421
  Receipt Date: 20160421
  Transmission Date: 20160815
  Serious: Yes (Other)
  Sender: FDA-Public Use
  Company Number: US-LANTHEUS-LMI-2016-00205

PATIENT
  Age: 46 Year
  Sex: Female

DRUGS (1)
  1. DEFINITY [Suspect]
     Active Substance: PERFLUTREN
     Indication: ECHOCARDIOGRAM
     Dosage: 0.5 ML, SINGLE
     Route: 042
     Dates: start: 20160407, end: 20160407

REACTIONS (6)
  - Throat tightness [Recovered/Resolved]
  - Hypoxia [Recovered/Resolved]
  - Headache [Unknown]
  - Cyanosis [Recovered/Resolved]
  - Erythema [Recovered/Resolved]
  - Dyspnoea [Recovered/Resolved]

NARRATIVE: CASE EVENT DATE: 20160407
